FAERS Safety Report 24387480 (Version 1)
Quarter: 2024Q4

REPORT INFORMATION
  Report Type: Spontaneous
  Country: US (occurrence: None)
  Receive Date: 20241001
  Receipt Date: 20241001
  Transmission Date: 20250115
  Serious: No
  Sender: Public
  Company Number: None

PATIENT
  Age: 80 Year
  Sex: Male
  Weight: 75 kg

DRUGS (1)
  1. ALOGLIPTIN [Suspect]
     Active Substance: ALOGLIPTIN
     Indication: Diabetes mellitus
     Dosage: 1.00 UNK - UNKNOWN DAILY ORAL
     Route: 048

REACTIONS (3)
  - Adenocarcinoma pancreas [None]
  - Hypertransaminasaemia [None]
  - Diarrhoea [None]

NARRATIVE: CASE EVENT DATE: 20231222
